FAERS Safety Report 15351214 (Version 5)
Quarter: 2019Q1

REPORT INFORMATION
  Report Type: Spontaneous
  Country: US (occurrence: US)
  Receive Date: 20180905
  Receipt Date: 20190308
  Transmission Date: 20190417
  Serious: Yes (Other)
  Sender: FDA-Public Use
  Company Number: US-PFIZER INC-2018356005

PATIENT
  Age: 29 Year
  Sex: Female
  Weight: 93.9 kg

DRUGS (5)
  1. TOPOTECAN [Concomitant]
     Active Substance: TOPOTECAN HYDROCHLORIDE
     Dosage: UNK
  2. SUNITINIB MALATE. [Suspect]
     Active Substance: SUNITINIB MALATE
     Dosage: 25 MG, 1X/DAY, (TAKE 25 MG BY MOUTH ONCE A DAY. PLEASE DISPENSE IN 12.5MG CAPSULES)
     Route: 048
     Dates: start: 20180817
  3. VERAPAMIL [Concomitant]
     Active Substance: VERAPAMIL HYDROCHLORIDE
  4. SUNITINIB MALATE. [Suspect]
     Active Substance: SUNITINIB MALATE
     Indication: LEUKAEMIA RECURRENT
     Dosage: 50 MG, DAILY
     Dates: start: 201806, end: 2018
  5. THIOTEPA. [Concomitant]
     Active Substance: THIOTEPA
     Dosage: UNK

REACTIONS (5)
  - Pancytopenia [Unknown]
  - Thrombocytopenia [Unknown]
  - Mucosal inflammation [Unknown]
  - Product use in unapproved indication [Unknown]
  - Neutropenia [Unknown]

NARRATIVE: CASE EVENT DATE: 2018
